FAERS Safety Report 14144227 (Version 4)
Quarter: 2022Q1

REPORT INFORMATION
  Report Type: Spontaneous
  Country: IT (occurrence: IT)
  Receive Date: 20171031
  Receipt Date: 20220216
  Transmission Date: 20220423
  Serious: Yes (Other)
  Sender: FDA-Public Use
  Company Number: IT-AUROBINDO-AUR-APL-2017-42721

PATIENT
  Age: 59 Year
  Sex: Male

DRUGS (11)
  1. RIBAVIRIN [Interacting]
     Active Substance: RIBAVIRIN
     Indication: Hepatitis C
     Dosage: UNK
     Route: 065
     Dates: start: 201604
  2. ENVARSUS XR [Interacting]
     Active Substance: TACROLIMUS
     Indication: Immunosuppression
     Dosage: UNK
     Route: 065
  3. MYCOPHENOLATE MOFETIL [Interacting]
     Active Substance: MYCOPHENOLATE MOFETIL
     Indication: Immunosuppressant drug therapy
     Dosage: UNK
     Route: 065
  4. MYCOPHENOLATE MOFETIL [Interacting]
     Active Substance: MYCOPHENOLATE MOFETIL
     Indication: Renal transplant
  5. PREDNISONE [Interacting]
     Active Substance: PREDNISONE
     Indication: Immunosuppressant drug therapy
     Dosage: UNK
     Route: 065
  6. PREDNISONE [Interacting]
     Active Substance: PREDNISONE
     Indication: Renal transplant
  7. RIBAVIRIN [Interacting]
     Active Substance: RIBAVIRIN
     Indication: Hepatitis C
     Dosage: UNK
     Route: 065
  8. RITONAVIR [Interacting]
     Active Substance: RITONAVIR
     Indication: Hepatitis C
     Dosage: UNK
     Route: 065
  9. TACROLIMUS [Interacting]
     Active Substance: TACROLIMUS
     Indication: Immunosuppressant drug therapy
     Dosage: UNK, REDUCED DOSE
     Route: 065
  10. TACROLIMUS [Interacting]
     Active Substance: TACROLIMUS
     Indication: Renal transplant
     Dosage: UNK
     Route: 065
  11. VIEKIRA PAK [Interacting]
     Active Substance: DASABUVIR\OMBITASVIR\PARITAPREVIR\RITONAVIR
     Indication: Hepatitis C
     Dosage: UNK
     Route: 065
     Dates: start: 201604

REACTIONS (10)
  - Anxiety [Recovered/Resolved]
  - Fatigue [Recovered/Resolved]
  - Hepatic cirrhosis [Unknown]
  - Hepatitis C RNA increased [Unknown]
  - Immunosuppressant drug level increased [Recovered/Resolved]
  - Insomnia [Unknown]
  - Palpitations [Unknown]
  - Portal hypertension [Unknown]
  - Renal impairment [Recovered/Resolved]
  - Drug interaction [Unknown]

NARRATIVE: CASE EVENT DATE: 20160101
